FAERS Safety Report 17942536 (Version 4)
Quarter: 2021Q3

REPORT INFORMATION
  Report Type: Spontaneous
  Country: FR (occurrence: FR)
  Receive Date: 20200625
  Receipt Date: 20210913
  Transmission Date: 20211014
  Serious: Yes (Hospitalization, Other)
  Sender: FDA-Public Use
  Company Number: FR-ADVANZ PHARMA-202005006499

PATIENT

DRUGS (2)
  1. HYDROXYCHLOROQUINE SULFATE (AUTHORIZED GENERIC),PLAQUENIL [Suspect]
     Active Substance: HYDROXYCHLOROQUINE SULFATE
     Indication: RHEUMATOID ARTHRITIS
     Dosage: 2 DOSAGE FORM, QD
     Route: 048
     Dates: start: 1990
  2. HYDROXYCHLOROQUINE SULFATE (AUTHORIZED GENERIC),PLAQUENIL [Suspect]
     Active Substance: HYDROXYCHLOROQUINE SULFATE
     Indication: CHONDROPATHY

REACTIONS (15)
  - Eyelid ptosis [Unknown]
  - Colour blindness [Unknown]
  - Eye disorder [Unknown]
  - Post procedural complication [Unknown]
  - Myocardial infarction [Unknown]
  - Visual impairment [Unknown]
  - Arrhythmia [Unknown]
  - IIIrd nerve paralysis [Unknown]
  - Toxicity to various agents [Unknown]
  - Meningioma [Unknown]
  - Procedural headache [Unknown]
  - Cardiac arrest [Unknown]
  - Vision blurred [Unknown]
  - Cardiac disorder [Unknown]
  - Hypoglycaemia [Unknown]

NARRATIVE: CASE EVENT DATE: 1997
